FAERS Safety Report 14046660 (Version 1)
Quarter: 2017Q4

REPORT INFORMATION
  Report Type: Spontaneous
  Country: US (occurrence: None)
  Receive Date: 20171004
  Receipt Date: 20171004
  Transmission Date: 20180321
  Serious: Yes (Other)
  Sender: FDA-Public Use
  Company Number: None

PATIENT
  Age: 55 Year
  Sex: Male
  Weight: 61.24 kg

DRUGS (16)
  1. DOVONEX [Suspect]
     Active Substance: CALCIPOTRIENE
     Indication: PSORIASIS
     Dosage: EACH GRAM CONTAINS: 0.05 MG, 60 G, TWICE DAILY, SKIN
     Route: 061
     Dates: start: 20170721, end: 20170809
  2. ADULT CENTRUM MULTIVITAMIN/MULTIMINERAL SUPPLEMENT [Concomitant]
  3. DESMOPRESSIN ACETATE. [Concomitant]
     Active Substance: DESMOPRESSIN ACETATE
  4. PREDNISONE. [Concomitant]
     Active Substance: PREDNISONE
  5. OMEPRAZOLE. [Concomitant]
     Active Substance: OMEPRAZOLE
  6. CENTRUM MULT VITAMIN WITH IRON [Concomitant]
  7. FLUOCINONIDE. [Concomitant]
     Active Substance: FLUOCINONIDE
  8. LAMOTRIGINE. [Concomitant]
     Active Substance: LAMOTRIGINE
  9. TACROLIMUS. [Concomitant]
     Active Substance: TACROLIMUS
  10. ENBREL [Concomitant]
     Active Substance: ETANERCEPT
  11. FOLIC ACID. [Concomitant]
     Active Substance: FOLIC ACID
  12. ACTONEL [Concomitant]
     Active Substance: RISEDRONATE SODIUM
  13. CITRACAL [Concomitant]
     Active Substance: CALCIUM CITRATE
  14. LOTIONS [Concomitant]
  15. AMLODIPINE BESYLATE. [Concomitant]
     Active Substance: AMLODIPINE BESYLATE
  16. CLINDAMYCIN. [Concomitant]
     Active Substance: CLINDAMYCIN

REACTIONS (1)
  - Hypersensitivity [None]

NARRATIVE: CASE EVENT DATE: 20170730
